FAERS Safety Report 21328855 (Version 1)
Quarter: 2022Q3

REPORT INFORMATION
  Report Type: Report from Study
  Country: US (occurrence: US)
  Receive Date: 20220913
  Receipt Date: 20220913
  Transmission Date: 20221027
  Serious: Yes (Death, Other)
  Sender: FDA-Public Use
  Company Number: US-BRISTOL-MYERS SQUIBB COMPANY-2022-101602

PATIENT
  Age: 72 Year
  Sex: Female
  Weight: 46.26 kg

DRUGS (16)
  1. POMALYST [Suspect]
     Active Substance: POMALIDOMIDE
     Indication: Plasma cell myeloma
     Dosage: 14 OUT OF 28 DAYS.
     Route: 048
     Dates: start: 201909
  2. ALPHA LIPOIC ACID [Concomitant]
     Active Substance: .ALPHA.-LIPOIC ACID
  3. VITAMIN B6 [Concomitant]
     Active Substance: PYRIDOXINE HYDROCHLORIDE
  4. ASPIRIN [Concomitant]
     Active Substance: ASPIRIN
  5. ACETAMINOPHEN [Concomitant]
     Active Substance: ACETAMINOPHEN
  6. OXYCODONE [Concomitant]
     Active Substance: OXYCODONE
  7. ATORVASTATIN [Concomitant]
     Active Substance: ATORVASTATIN
  8. DULOXETINE [Concomitant]
     Active Substance: DULOXETINE
  9. XTAMPZA [Concomitant]
     Active Substance: OXYCODONE
  10. VITAMIN D3 [Concomitant]
     Active Substance: CHOLECALCIFEROL
  11. ACYCLOVIR [Concomitant]
     Active Substance: ACYCLOVIR
  12. COLACE [Concomitant]
     Active Substance: DOCUSATE SODIUM
  13. CALCIUM CITRATE [Concomitant]
     Active Substance: CALCIUM CITRATE
  14. L CARTININE [Concomitant]
  15. DEXAMETHASONE [Concomitant]
     Active Substance: DEXAMETHASONE
  16. PROCRIT [Concomitant]
     Active Substance: ERYTHROPOIETIN

REACTIONS (2)
  - Death [Fatal]
  - Off label use [Unknown]

NARRATIVE: CASE EVENT DATE: 20220901
